FAERS Safety Report 6861321-6 (Version None)
Quarter: 2010Q3

REPORT INFORMATION
  Report Type: 
  Country: None (occurrence: None)
  Receive Date: 20100715
  Receipt Date: 20100701
  Transmission Date: 20110219
  Serious: Yes (Hospitalization)
  Sender: FDA-Public Use
  Company Number: JP-1182461

PATIENT
  Age: 42 Year
  Sex: Male

DRUGS (1)
  1. FLUORESCITE [Suspect]
     Indication: ANGIOGRAM RETINA
     Dosage: 500MG IV INTRAVENOUS BOLUS
     Route: 040
     Dates: start: 20100624, end: 20100624

REACTIONS (3)
  - PRURITUS [None]
  - RESPIRATORY ARREST [None]
  - SHOCK [None]
